FAERS Safety Report 11396256 (Version 2)
Quarter: 2015Q4

REPORT INFORMATION
  Report Type: Spontaneous
  Country: US (occurrence: US)
  Receive Date: 20150819
  Receipt Date: 20151214
  Transmission Date: 20160304
  Serious: Yes (Hospitalization, Other)
  Sender: FDA-Public Use
  Company Number: US-JNJFOC-20150803752

PATIENT
  Age: 68 Year
  Sex: Female

DRUGS (10)
  1. ADVAIR HFA [Concomitant]
     Active Substance: FLUTICASONE PROPIONATE\SALMETEROL XINAFOATE
     Route: 065
     Dates: start: 2010
  2. METOPROLOL [Concomitant]
     Active Substance: METOPROLOL
     Route: 065
     Dates: start: 2013
  3. XARELTO [Suspect]
     Active Substance: RIVAROXABAN
     Indication: THROMBOSIS PROPHYLAXIS
     Route: 048
     Dates: start: 20131014, end: 20131101
  4. LISINOPRIL. [Concomitant]
     Active Substance: LISINOPRIL
     Route: 065
     Dates: start: 2012
  5. XARELTO [Suspect]
     Active Substance: RIVAROXABAN
     Indication: CEREBROVASCULAR ACCIDENT PROPHYLAXIS
     Route: 048
     Dates: start: 20131014, end: 20131101
  6. DILTIAZEM [Concomitant]
     Active Substance: DILTIAZEM
     Route: 065
     Dates: start: 2013
  7. DOXYCYCLINE. [Concomitant]
     Active Substance: DOXYCYCLINE
     Route: 065
  8. XARELTO [Suspect]
     Active Substance: RIVAROXABAN
     Indication: ATRIAL FIBRILLATION
     Route: 048
     Dates: start: 20131014, end: 20131101
  9. LEVOFLOXACIN. [Concomitant]
     Active Substance: LEVOFLOXACIN
     Route: 065
  10. BUDESONIDE. [Concomitant]
     Active Substance: BUDESONIDE
     Route: 065
     Dates: start: 2010

REACTIONS (2)
  - Epistaxis [Unknown]
  - Haemorrhage [Unknown]

NARRATIVE: CASE EVENT DATE: 20131101
